FAERS Safety Report 6493878-1 (Version None)
Quarter: 2009Q4

REPORT INFORMATION
  Report Type: 
  Country: None (occurrence: None)
  Receive Date: 20091214
  Receipt Date: 20081117
  Transmission Date: 20100525
  Serious: No
  Sender: FDA-Public Use
  Company Number: US-BRISTOL-MYERS SQUIBB COMPANY-14408850

PATIENT
  Age: 59 Year
  Sex: Female
  Weight: 63 kg

DRUGS (7)
  1. ABILIFY [Suspect]
     Indication: BIPOLAR II DISORDER
     Dosage: START-2(1/2) WEEKS AGO;INCREASED-5MG,10MG+15MG(LOT#7F27320,EXP-6/2009)(DAILY NIGHTTIME)NOW IN MORN;
  2. LORAZEPAM [Concomitant]
  3. PRAVASTATIN SODIUM [Concomitant]
  4. FINASTERIDE [Concomitant]
  5. LAMICTAL [Concomitant]
  6. RISPERDAL [Concomitant]
  7. KLONOPIN [Concomitant]

REACTIONS (5)
  - CONFUSIONAL STATE [None]
  - DIZZINESS [None]
  - INSOMNIA [None]
  - MEMORY IMPAIRMENT [None]
  - SOMNOLENCE [None]
